FAERS Safety Report 7251625-X (Version None)
Quarter: 2011Q1

REPORT INFORMATION
  Report Type: 
  Country: None (occurrence: None)
  Receive Date: 20110128
  Receipt Date: 20110120
  Transmission Date: 20110831
  Serious: Yes (Other)
  Sender: FDA-Public Use
  Company Number: US-PFIZER INC-US-WYE-H17583910

PATIENT
  Sex: Female

DRUGS (2)
  1. LYRICA [Suspect]
     Dosage: UNKNOWN
     Route: 065
     Dates: start: 20070101
  2. PRISTIQ [Suspect]
     Dosage: UNKNOWN
     Route: 048

REACTIONS (3)
  - ROAD TRAFFIC ACCIDENT [None]
  - SPINAL OPERATION [None]
  - SENSORY LOSS [None]
